FAERS Safety Report 15787403 (Version 1)
Quarter: 2019Q1

REPORT INFORMATION
  Report Type: Spontaneous
  Country: US (occurrence: US)
  Receive Date: 20190103
  Receipt Date: 20190103
  Transmission Date: 20190417
  Serious: Yes (Other)
  Sender: FDA-Public Use
  Company Number: US-ACELLA PHARMACEUTICALS, LLC-2060824

PATIENT
  Age: 45 Year
  Sex: Male

DRUGS (6)
  1. ALPRAZOLAM. [Concomitant]
     Active Substance: ALPRAZOLAM
  2. CLOMIPRAMINE HYDROCHLORIDE. [Concomitant]
     Active Substance: CLOMIPRAMINE HYDROCHLORIDE
  3. DEXTROAMPHET SACCHARAT, AMPHET ASPARTATE, DEXTROAMPHET SULFATE AND AMPHET SULFAT [Concomitant]
     Active Substance: AMPHETAMINE ASPARTATE\AMPHETAMINE SULFATE\DEXTROAMPHETAMINE SACCHARATE\DEXTROAMPHETAMINE SULFATE
  4. BROMPHENIRAMINE MAL, PSEUDOEPHEDRINE HCL, AND DEXTROMETHORPHAN HBR (AN [Suspect]
     Active Substance: DEXBROMPHENIRAMINE MALEATE\DEXTROMETHORPHAN HYDROBROMIDE\PSEUDOEPHEDRINE HYDROCHLORIDE
     Indication: NASOPHARYNGITIS
  5. FLUOXETINE [Concomitant]
     Active Substance: FLUOXETINE HYDROCHLORIDE
  6. LITHIUM. [Concomitant]
     Active Substance: LITHIUM

REACTIONS (1)
  - Generalised tonic-clonic seizure [Unknown]
